FAERS Safety Report 5703738-9 (Version None)
Quarter: 2008Q2

REPORT INFORMATION
  Report Type: 
  Country: None (occurrence: None)
  Receive Date: 20080413
  Receipt Date: 20080404
  Transmission Date: 20081010
  Serious: Yes (Hospitalization, Disabling)
  Sender: FDA-Public Use
  Company Number: PHRM2008FR01222

PATIENT
  Age: 41 Year
  Sex: Male

DRUGS (5)
  1. ZOMETA [Suspect]
     Indication: HYPERCALCAEMIA OF MALIGNANCY
     Dosage: 40 MG/KG
     Route: 042
     Dates: start: 20040701
  2. ZOMETA [Suspect]
     Dosage: 40 MG/KG
     Route: 042
     Dates: start: 20040728
  3. THALIDOMIDE [Concomitant]
     Indication: MULTIPLE MYELOMA
     Route: 002
  4. DEXAMETHASONE [Suspect]
     Dosage: 160 MG/DAY
     Dates: start: 20040719
  5. ALKERAN [Concomitant]
     Indication: MULTIPLE MYELOMA
     Dosage: 200 MG/M2/DAY
     Route: 042
     Dates: start: 20010101

REACTIONS (4)
  - CELLULITIS [None]
  - DEBRIDEMENT [None]
  - JAW OPERATION [None]
  - OSTEONECROSIS [None]
